FAERS Safety Report 17063628 (Version 1)
Quarter: 2019Q4

REPORT INFORMATION
  Report Type: Spontaneous
  Country: US (occurrence: US)
  Receive Date: 20191122
  Receipt Date: 20191122
  Transmission Date: 20200122
  Serious: No
  Sender: FDA-Public Use
  Company Number: US-MYLANLABS-2019M1111201

PATIENT
  Sex: Female
  Weight: 83 kg

DRUGS (2)
  1. FENTANYL TRANSDERMAL SYSTEM [Suspect]
     Active Substance: FENTANYL
     Dosage: 1 DOSAGE FORM, Q2D (1 TIME EVERY 48 HRS)
  2. FENTANYL TRANSDERMAL SYSTEM [Suspect]
     Active Substance: FENTANYL
     Indication: PAIN
     Dosage: 1 DOSAGE FORM, Q3D (1 TIME EVERY 72 HRS)
     Route: 062

REACTIONS (2)
  - Therapeutic product effect decreased [Recovered/Resolved]
  - Product quality issue [Unknown]
